FAERS Safety Report 8836247 (Version 1)
Quarter: 2012Q4

REPORT INFORMATION
  Report Type: 
  Country: US (occurrence: US)
  Receive Date: 20121011
  Receipt Date: 20121011
  Transmission Date: 20130627
  Serious: Yes (Other)
  Sender: FDA-Public Use
  Company Number: US-ROCHE-1115771

PATIENT
  Sex: Male
  Weight: 50 kg

DRUGS (3)
  1. NUTROPIN AQ [Suspect]
     Indication: CYSTINOSIS
     Route: 065
     Dates: start: 199801
  2. NUTROPIN AQ [Suspect]
     Indication: MUSCULAR WEAKNESS
  3. SYNTHROID [Concomitant]
     Route: 065

REACTIONS (6)
  - Malaise [Unknown]
  - Dysphagia [Unknown]
  - Aspiration [Unknown]
  - Dyspnoea [Unknown]
  - Myalgia [Unknown]
  - Weight decreased [Unknown]
